FAERS Safety Report 19035003 (Version 1)
Quarter: 2021Q1

REPORT INFORMATION
  Report Type: Spontaneous
  Country: CN (occurrence: CN)
  Receive Date: 20210320
  Receipt Date: 20210320
  Transmission Date: 20210420
  Serious: Yes (Hospitalization)
  Sender: FDA-Public Use
  Company Number: NVSC2021CN062426

PATIENT
  Age: 38 Year
  Sex: Male
  Weight: 70 kg

DRUGS (1)
  1. PARLODEL [Suspect]
     Active Substance: BROMOCRIPTINE MESYLATE
     Indication: HYPERPROLACTINAEMIA
     Dosage: 1 DF, QD
     Route: 048
     Dates: start: 20201225, end: 20210224

REACTIONS (10)
  - Chills [Recovering/Resolving]
  - Lymph node pain [Recovering/Resolving]
  - Nasal obstruction [Recovering/Resolving]
  - Lymphadenopathy [Recovering/Resolving]
  - Temperature intolerance [Recovering/Resolving]
  - Rhinorrhoea [Recovering/Resolving]
  - Pyrexia [Recovering/Resolving]
  - Rash [Recovering/Resolving]
  - Pruritus [Recovering/Resolving]
  - Drug hypersensitivity [Recovering/Resolving]

NARRATIVE: CASE EVENT DATE: 20210216
